FAERS Safety Report 20039056 (Version 1)
Quarter: 2021Q4

REPORT INFORMATION
  Report Type: Spontaneous
  Country: CN (occurrence: CN)
  Receive Date: 20211105
  Receipt Date: 20211105
  Transmission Date: 20220303
  Serious: Yes (Other)
  Sender: FDA-Public Use
  Company Number: CN-PFIZER INC-202101484209

PATIENT
  Age: 9 Year
  Sex: Male
  Weight: 17 kg

DRUGS (9)
  1. METHOTREXATE [Suspect]
     Active Substance: METHOTREXATE
     Indication: Chemotherapy
     Dosage: 12.5 MG, 1X/DAY
     Route: 037
     Dates: start: 20211001, end: 20211001
  2. ETOPOSIDE [Suspect]
     Active Substance: ETOPOSIDE
     Indication: Chemotherapy
     Dosage: 0.075 G, 1X/DAY
     Route: 041
     Dates: start: 20211005, end: 20211008
  3. DEXAMETHASONE SODIUM PHOSPHATE [Suspect]
     Active Substance: DEXAMETHASONE SODIUM PHOSPHATE
     Indication: Chemotherapy
     Dosage: 5 MG, 1X/DAY
     Route: 037
     Dates: start: 20211001, end: 20211001
  4. CYTARABINE HYDROCHLORIDE [Suspect]
     Active Substance: CYTARABINE HYDROCHLORIDE
     Indication: Chemotherapy
     Dosage: 0.075 G, 1X/DAY
     Route: 041
     Dates: start: 20211001, end: 20211008
  5. CYTARABINE HYDROCHLORIDE [Suspect]
     Active Substance: CYTARABINE HYDROCHLORIDE
     Dosage: 35 MG, 1X/DAY
     Route: 037
     Dates: start: 20211001, end: 20211001
  6. OMACETAXINE MEPESUCCINATE [Suspect]
     Active Substance: OMACETAXINE MEPESUCCINATE
     Indication: Chemotherapy
     Dosage: 3 MG, 1X/DAY
     Route: 041
     Dates: start: 20211001, end: 20211010
  7. SODIUM CHLORIDE [Concomitant]
     Active Substance: SODIUM CHLORIDE
     Indication: Vehicle solution use
     Dosage: 100 ML, 1X/DAY
     Route: 041
     Dates: start: 20211001, end: 20211008
  8. SODIUM CHLORIDE [Concomitant]
     Active Substance: SODIUM CHLORIDE
     Indication: Vehicle solution use
     Dosage: 300 ML, 1X/DAY
     Route: 041
     Dates: start: 20211005, end: 20211008
  9. DEXTROSE [Concomitant]
     Active Substance: DEXTROSE
     Indication: Vehicle solution use
     Dosage: 250 ML, 1X/DAY
     Route: 041
     Dates: start: 20211001, end: 20211010

REACTIONS (5)
  - Neutrophil count decreased [Recovering/Resolving]
  - White blood cell count decreased [Recovering/Resolving]
  - Platelet count decreased [Recovering/Resolving]
  - Haemoglobin decreased [Recovering/Resolving]
  - Myelosuppression [Recovering/Resolving]

NARRATIVE: CASE EVENT DATE: 20211010
